FAERS Safety Report 9076302 (Version 1)
Quarter: 2013Q1

REPORT INFORMATION
  Report Type: Report from Study
  Country: US (occurrence: US)
  Receive Date: 20130129
  Receipt Date: 20130129
  Transmission Date: 20140127
  Serious: No
  Sender: FDA-Public Use
  Company Number: US-ABBOTT-12P-163-0944944-00

PATIENT
  Age: 65 Year
  Sex: Female

DRUGS (7)
  1. HUMIRA 40 MG/ 0.8 ML PRE-FILLED SYRINGE [Suspect]
     Indication: RHEUMATOID ARTHRITIS
     Route: 058
     Dates: start: 20120526
  2. DIAZIDE [Concomitant]
     Indication: BLOOD PRESSURE
     Dosage: 37.5/25 MG DAILY
  3. LISINOPRIL [Concomitant]
     Indication: BLOOD PRESSURE
     Dosage: 20MG DAILY
  4. LIPITOR [Concomitant]
     Indication: BLOOD CHOLESTEROL INCREASED
     Dosage: 10MG DAILY
  5. AMBIEN CR [Concomitant]
     Indication: INSOMNIA
     Dosage: 12.5MG AT BEDTIME
  6. CALIUM [Concomitant]
     Indication: MINERAL SUPPLEMENTATION
  7. VITAMIN D [Concomitant]
     Indication: VITAMIN SUPPLEMENTATION
     Dosage: 2000 IU^S ONE DAILY

REACTIONS (3)
  - Injection site swelling [Not Recovered/Not Resolved]
  - Injection site pruritus [Not Recovered/Not Resolved]
  - Injection site swelling [Not Recovered/Not Resolved]
